FAERS Safety Report 6978303-6 (Version None)
Quarter: 2010Q3

REPORT INFORMATION
  Report Type: 
  Country: None (occurrence: None)
  Receive Date: 20100913
  Receipt Date: 20100902
  Transmission Date: 20110219
  Serious: Yes (Death)
  Sender: FDA-Public Use
  Company Number: DE-JNJFOC-20100901854

PATIENT
  Age: 38 Year
  Sex: Male

DRUGS (3)
  1. REMICADE [Suspect]
     Indication: COLITIS ULCERATIVE
     Route: 042
  2. AZATHIOPRINE [Concomitant]
     Indication: COLITIS ULCERATIVE
  3. STEROIDS NOS [Concomitant]
     Indication: COLITIS ULCERATIVE
     Dosage: 5-30 MG

REACTIONS (2)
  - COLON CANCER METASTATIC [None]
  - PULMONARY EMBOLISM [None]
